FAERS Safety Report 19714236 (Version 1)
Quarter: 2021Q3

REPORT INFORMATION
  Report Type: Spontaneous
  Country: DE (occurrence: DE)
  Receive Date: 20210818
  Receipt Date: 20210818
  Transmission Date: 20211014
  Serious: Yes (Hospitalization, Other)
  Sender: FDA-Public Use
  Company Number: DE-SUN PHARMACEUTICAL INDUSTRIES LTD-2021RR-308260

PATIENT
  Age: 49 Year
  Sex: Female
  Weight: 62 kg

DRUGS (7)
  1. FLUOROURACIL. [Suspect]
     Active Substance: FLUOROURACIL
     Indication: PRODUCT USED FOR UNKNOWN INDICATION
     Dosage: ACCORDING TO THE SCHEME ()
     Route: 065
  2. OXALIPLATIN. [Suspect]
     Active Substance: OXALIPLATIN
     Indication: PRODUCT USED FOR UNKNOWN INDICATION
     Dosage: ACCORDING TO THE SCHEME ()
     Route: 065
  3. OPIPRAMOL [Concomitant]
     Active Substance: OPIPRAMOL
     Indication: PRODUCT USED FOR UNKNOWN INDICATION
     Dosage: 50 MG, 1?0?1?0, TABLETTEN
     Route: 048
  4. AMLODIPIN/OLMESARTAN [Concomitant]
     Active Substance: AMLODIPINE\OLMESARTAN
     Indication: PRODUCT USED FOR UNKNOWN INDICATION
     Dosage: 5/20 MG, 1?0?0?0, TABLETTEN
     Route: 048
  5. METAMIZOL [Concomitant]
     Active Substance: METAMIZOLE SODIUM
     Indication: PRODUCT USED FOR UNKNOWN INDICATION
     Dosage: 500 MG, NEED, TABLET; AS NECESSARY
     Route: 048
  6. FOLINSAURE [Concomitant]
     Active Substance: LEUCOVORIN
     Indication: PRODUCT USED FOR UNKNOWN INDICATION
     Dosage: ACCORDING TO THE SCHEME ()
     Route: 065
  7. LORAZEPAM. [Concomitant]
     Active Substance: LORAZEPAM
     Indication: PRODUCT USED FOR UNKNOWN INDICATION
     Dosage: 1 MG,NEED, TABLET; AS NECESSARY
     Route: 048

REACTIONS (3)
  - Pain [Unknown]
  - Haematochezia [Unknown]
  - Diarrhoea [Unknown]
